FAERS Safety Report 8075453-0 (Version None)
Quarter: 2012Q1

REPORT INFORMATION
  Report Type: 
  Country: None (occurrence: None)
  Receive Date: 20120120
  Receipt Date: 20120109
  Transmission Date: 20120608
  Serious: Yes (Other)
  Sender: FDA-Public Use
  Company Number: 2012MA000628

PATIENT
  Age: 71 Year
  Sex: Female

DRUGS (8)
  1. ATENOLOL [Concomitant]
  2. SERTRALINE HYDROCHLORIDE [Suspect]
     Indication: PRODUCT USED FOR UNKNOWN INDICATION
     Dosage: 50 MG
  3. AMISULPRIDE [Concomitant]
  4. NICERGOLINE [Concomitant]
  5. CANDESARTAN CILEXETIL [Concomitant]
  6. AMLODIPINE [Concomitant]
  7. ASPIRIN [Concomitant]
  8. DIAZEPAM [Concomitant]

REACTIONS (1)
  - RHABDOMYOLYSIS [None]
